FAERS Safety Report 11705734 (Version 2)
Quarter: 2015Q4

REPORT INFORMATION
  Report Type: Spontaneous
  Country: IL (occurrence: IL)
  Receive Date: 20151106
  Receipt Date: 20151116
  Transmission Date: 20160304
  Serious: Yes (Other)
  Sender: FDA-Public Use
  Company Number: IL-JNJFOC-20151100984

PATIENT
  Sex: Female

DRUGS (9)
  1. MABTHERA [Concomitant]
     Active Substance: RITUXIMAB
  2. BEVACIZUMAB [Concomitant]
     Active Substance: BEVACIZUMAB
  3. VINCRISTINE [Concomitant]
     Active Substance: VINCRISTINE
  4. CYCLOPHOSPHAMIDE. [Concomitant]
     Active Substance: CYCLOPHOSPHAMIDE
  5. DOXORUBICIN [Concomitant]
     Active Substance: DOXORUBICIN
  6. IMBRUVICA [Suspect]
     Active Substance: IBRUTINIB
     Indication: MANTLE CELL LYMPHOMA
     Route: 048
  7. PREDNISONE. [Concomitant]
     Active Substance: PREDNISONE
  8. CHLORAMBUCIL [Concomitant]
     Active Substance: CHLORAMBUCIL
  9. RITUXIMAB [Concomitant]
     Active Substance: RITUXIMAB

REACTIONS (2)
  - Major depression [Unknown]
  - Mantle cell lymphoma [Unknown]
